FAERS Safety Report 24449660 (Version 1)
Quarter: 2024Q4

REPORT INFORMATION
  Report Type: Spontaneous
  Country: US (occurrence: None)
  Receive Date: 20241016
  Receipt Date: 20241016
  Transmission Date: 20250114
  Serious: No
  Sender: Public
  Company Number: None

PATIENT
  Age: 45 Year
  Sex: Female
  Weight: 133.36 kg

DRUGS (1)
  1. COSENTYX [Suspect]
     Active Substance: SECUKINUMAB
     Indication: Spondyloarthropathy
     Dosage: OTHER FREQUENCY : EVERYWKFOR5WKSASDIR;?
     Route: 058
     Dates: start: 202205

REACTIONS (2)
  - Infection parasitic [None]
  - Rib fracture [None]
